FAERS Safety Report 5658182-X (Version None)
Quarter: 2008Q1

REPORT INFORMATION
  Report Type: 
  Country: None (occurrence: None)
  Receive Date: 20080310
  Receipt Date: 20070108
  Transmission Date: 20080703
  Serious: No
  Sender: FDA-Public Use
  Company Number: US-BAYER-200710074BCC

PATIENT
  Age: 73 Year
  Sex: Female
  Weight: 108 kg

DRUGS (5)
  1. ALEVE [Suspect]
     Indication: ARTHRITIS
     Dosage: TOTAL DAILY DOSE: 220 MG  UNIT DOSE: 220 MG
     Route: 048
     Dates: start: 20030101
  2. AMARYL [Concomitant]
  3. LEVOTHYROXINE SODIUM [Concomitant]
  4. AVAPRO [Concomitant]
  5. CHOLESTEROL MEDICATION [Concomitant]

REACTIONS (1)
  - ARTHRITIS [None]
